FAERS Safety Report 4354455-1 (Version None)
Quarter: 2004Q2

REPORT INFORMATION
  Report Type: 
  Country: None (occurrence: None)
  Receive Date: 20040503
  Receipt Date: 20040426
  Transmission Date: 20050107
  Serious: Yes (Death)
  Sender: FDA-Public Use
  Company Number: 2004JP000313

PATIENT
  Age: 49 Year
  Sex: Male

DRUGS (3)
  1. PROGRAF [Suspect]
     Indication: RENAL TRANSPLANT
     Dosage: 3.50 MG, TID, ORAL
     Route: 048
     Dates: start: 20010128, end: 20031110
  2. PREDNISOLONE [Suspect]
     Dosage: 5.00 MG, UID/QD, ORAL
     Route: 048
     Dates: start: 20010131, end: 20031229
  3. KOLANTYL (DICYCLOVERINE HYDROCHLORIDE, MAGNESIUM OXIDE, ALUMINIUM HYDR [Concomitant]

REACTIONS (6)
  - ABSCESS LIMB [None]
  - CELLULITIS [None]
  - CRYPTOCOCCOSIS [None]
  - ENCEPHALITIS [None]
  - GENERALISED ERYTHEMA [None]
  - MULTI-ORGAN FAILURE [None]
